FAERS Safety Report 14485104 (Version 2)
Quarter: 2018Q2

REPORT INFORMATION
  Report Type: Spontaneous
  Country: US (occurrence: US)
  Receive Date: 20180205
  Receipt Date: 20180405
  Transmission Date: 20180711
  Serious: No
  Sender: FDA-Public Use
  Company Number: US-PFIZER INC-2018043305

PATIENT
  Age: 53 Year
  Sex: Male
  Weight: 159.6 kg

DRUGS (2)
  1. VIAGRA [Suspect]
     Active Substance: SILDENAFIL CITRATE
     Indication: SEXUAL DYSFUNCTION
     Dosage: 100 MG, UNK (TWO TO THREE TIMES A WEEK)
     Route: 048
  2. VIAGRA [Suspect]
     Active Substance: SILDENAFIL CITRATE
     Indication: ERECTILE DYSFUNCTION
     Dosage: 100 MG, TWO TO THREE TIMES A WEEK
     Route: 048
     Dates: start: 201803

REACTIONS (3)
  - Drug ineffective [Not Recovered/Not Resolved]
  - Diabetic neuropathy [Unknown]
  - Neuralgia [Unknown]

NARRATIVE: CASE EVENT DATE: 201803
